FAERS Safety Report 11205068 (Version 1)
Quarter: 2015Q2

REPORT INFORMATION
  Report Type: Spontaneous
  Country: IN (occurrence: IN)
  Receive Date: 20150622
  Receipt Date: 20150622
  Transmission Date: 20150821
  Serious: Yes (Other)
  Sender: FDA-Public Use
  Company Number: IN-SUN PHARMACEUTICAL INDUSTRIES LTD-2015R1-99008

PATIENT
  Age: 50 Year
  Sex: Male

DRUGS (1)
  1. PENTAZOCINE [Suspect]
     Active Substance: PENTAZOCINE
     Indication: ANALGESIC THERAPY
     Dosage: UNK
     Route: 065

REACTIONS (4)
  - Skin ulcer [Unknown]
  - Drug dependence [Unknown]
  - Type 2 diabetes mellitus [Unknown]
  - Drug administered at inappropriate site [Unknown]
